FAERS Safety Report 16692786 (Version 1)
Quarter: 2019Q3

REPORT INFORMATION
  Report Type: Report from Study
  Country: US (occurrence: US)
  Receive Date: 20190812
  Receipt Date: 20190812
  Transmission Date: 20191004
  Serious: Yes (Other)
  Sender: FDA-Public Use
  Company Number: US-JNJFOC-20190810882

PATIENT
  Sex: Female

DRUGS (16)
  1. ONDANSETRON [Concomitant]
     Active Substance: ONDANSETRON
  2. ACETAMINOPHEN. [Concomitant]
     Active Substance: ACETAMINOPHEN
  3. PROCRIT [Concomitant]
     Active Substance: ERYTHROPOIETIN
  4. MAGNESIUM OXIDE. [Concomitant]
     Active Substance: MAGNESIUM OXIDE
  5. IMBRUVICA [Suspect]
     Active Substance: IBRUTINIB
     Indication: CHRONIC LYMPHOCYTIC LEUKAEMIA
     Dosage: 280 MG, QD
     Route: 048
     Dates: start: 20150401, end: 20180509
  6. IMBRUVICA [Suspect]
     Active Substance: IBRUTINIB
     Dosage: 140 MG, QD
     Route: 048
     Dates: start: 20181018
  7. IMBRUVICA [Suspect]
     Active Substance: IBRUTINIB
     Indication: CHRONIC LYMPHOCYTIC LEUKAEMIA
     Route: 048
     Dates: start: 20180510, end: 20180703
  8. RENVELA [Concomitant]
     Active Substance: SEVELAMER CARBONATE
  9. IMBRUVICA [Suspect]
     Active Substance: IBRUTINIB
     Indication: CHRONIC LYMPHOCYTIC LEUKAEMIA
     Dosage: 280 MG, QD
     Route: 048
     Dates: start: 20180704, end: 20181017
  10. FUROSEMIDE. [Concomitant]
     Active Substance: FUROSEMIDE
  11. ATENOLOL. [Concomitant]
     Active Substance: ATENOLOL
  12. FOLIC ACID. [Concomitant]
     Active Substance: FOLIC ACID
  13. ISOSORBIDE MONONITRATE. [Concomitant]
     Active Substance: ISOSORBIDE MONONITRATE
  14. PREDNISONE. [Concomitant]
     Active Substance: PREDNISONE
  15. VITAMIN B12 [Concomitant]
     Active Substance: CYANOCOBALAMIN
  16. VITAMIN D3 [Concomitant]
     Active Substance: CHOLECALCIFEROL

REACTIONS (2)
  - Skin cancer [Unknown]
  - Contusion [Unknown]
